FAERS Safety Report 25430652 (Version 1)
Quarter: 2025Q2

REPORT INFORMATION
  Report Type: Spontaneous
  Country: US (occurrence: US)
  Receive Date: 20250612
  Receipt Date: 20250612
  Transmission Date: 20250716
  Serious: Yes (Hospitalization)
  Sender: MERCK SHARP & DOHME LLC
  Company Number: US-ASTRAZENECA-202504GLO013254US

PATIENT
  Age: 70 Year
  Sex: Female
  Weight: 65 kg

DRUGS (18)
  1. PEMBROLIZUMAB [Suspect]
     Active Substance: PEMBROLIZUMAB
     Indication: Triple negative breast cancer
     Dosage: 200 MG, ONCE EVERY 3 WK
     Route: 042
     Dates: start: 20250116, end: 20250320
  2. LIPITOR [Concomitant]
     Active Substance: ATORVASTATIN CALCIUM
     Indication: Blood cholesterol increased
     Dosage: 40 MG, QD
     Route: 048
     Dates: start: 201205
  3. CARBOPLATIN [Suspect]
     Active Substance: CARBOPLATIN
     Indication: Non-small cell lung cancer
     Route: 042
     Dates: start: 20250116, end: 20250403
  4. MIRALAX [Concomitant]
     Active Substance: POLYETHYLENE GLYCOL 3350
     Indication: Constipation
     Route: 048
     Dates: start: 20250220
  5. LANSOPRAZOLE [Concomitant]
     Active Substance: LANSOPRAZOLE
     Indication: Gastrooesophageal reflux disease
     Dosage: 15 MG, QD
     Route: 048
     Dates: start: 201805
  6. ALEVE [Concomitant]
     Active Substance: NAPROXEN SODIUM
     Indication: Headache
     Route: 048
     Dates: start: 2000
  7. MEDROL [Concomitant]
     Active Substance: METHYLPREDNISOLONE
     Indication: Rash pruritic
     Route: 048
     Dates: start: 20250224, end: 20250224
  8. MEDROL [Concomitant]
     Active Substance: METHYLPREDNISOLONE
     Indication: Rash pruritic
     Route: 048
     Dates: start: 20250225, end: 20250225
  9. MEDROL [Concomitant]
     Active Substance: METHYLPREDNISOLONE
     Indication: Rash pruritic
     Route: 048
     Dates: start: 20250222, end: 20250222
  10. MEDROL [Concomitant]
     Active Substance: METHYLPREDNISOLONE
     Indication: Rash pruritic
     Route: 048
     Dates: start: 20250221, end: 20250221
  11. MEDROL [Concomitant]
     Active Substance: METHYLPREDNISOLONE
     Indication: Rash pruritic
     Route: 048
     Dates: start: 20250223, end: 20250223
  12. MEDROL [Concomitant]
     Active Substance: METHYLPREDNISOLONE
     Indication: Rash pruritic
     Route: 048
     Dates: start: 20250220, end: 20250220
  13. DULCOLAX STOOL SOFTENER [Concomitant]
     Active Substance: DOCUSATE SODIUM
     Indication: Constipation
     Route: 048
     Dates: start: 20250310
  14. PACLITAXEL [Suspect]
     Active Substance: PACLITAXEL
     Indication: Non-small cell lung cancer
     Dosage: 80 MG/M2, ONCE EVERY 1 WK
     Route: 042
     Dates: start: 20250116, end: 20250403
  15. DOXYCYCLINE HYDROCHLORIDE [Concomitant]
     Active Substance: DOXYCYCLINE HYDROCHLORIDE
     Indication: Arthropod bite
     Route: 048
     Dates: start: 20250403
  16. TUMS [Concomitant]
     Active Substance: CALCIUM CARBONATE
     Indication: Gastrooesophageal reflux disease
     Route: 048
     Dates: start: 20250313
  17. BENADRYL [Concomitant]
     Active Substance: DIPHENHYDRAMINE HYDROCHLORIDE
     Indication: Rash pruritic
     Route: 048
     Dates: start: 20250313
  18. LUMIFY [Concomitant]
     Active Substance: BRIMONIDINE TARTRATE
     Indication: Blepharitis
     Route: 048
     Dates: start: 2004

REACTIONS (1)
  - Pneumonitis [Not Recovered/Not Resolved]

NARRATIVE: CASE EVENT DATE: 20250414
